FAERS Safety Report 7814078-6 (Version None)
Quarter: 2011Q4

REPORT INFORMATION
  Report Type: 
  Country: None (occurrence: None)
  Receive Date: 20111014
  Receipt Date: 20111004
  Transmission Date: 20120403
  Serious: Yes (Hospitalization)
  Sender: FDA-Public Use
  Company Number: US-JNJFOC-20111002126

PATIENT
  Age: 32 Year
  Sex: Male

DRUGS (3)
  1. LITHIUM [Concomitant]
     Indication: BIPOLAR DISORDER
     Dosage: 600MG IN AM, 900MG IN PM
     Route: 048
  2. COGENTIN [Concomitant]
     Route: 048
  3. INVEGA SUSTENNA [Suspect]
     Indication: BIPOLAR DISORDER
     Route: 030
     Dates: start: 20110101

REACTIONS (2)
  - INCORRECT DOSE ADMINISTERED [None]
  - BIPOLAR DISORDER [None]
